FAERS Safety Report 12971103 (Version 3)
Quarter: 2017Q2

REPORT INFORMATION
  Report Type: Spontaneous
  Country: US (occurrence: US)
  Receive Date: 20161123
  Receipt Date: 20170525
  Transmission Date: 20170830
  Serious: No
  Sender: FDA-Public Use
  Company Number: US-JAZZ-2016-US-019007

PATIENT
  Sex: Female

DRUGS (28)
  1. XYREM [Suspect]
     Active Substance: SODIUM OXYBATE
     Indication: NARCOLEPSY
     Dosage: 2.25 G, BID
     Route: 048
     Dates: start: 201605, end: 201605
  2. TEMAZEPAM. [Concomitant]
     Active Substance: TEMAZEPAM
  3. AMANTADINE. [Concomitant]
     Active Substance: AMANTADINE HYDROCHLORIDE
  4. LEVOTHYROXINE. [Concomitant]
     Active Substance: LEVOTHYROXINE
  5. OXYCODONE HYDROCHLORIDE. [Concomitant]
     Active Substance: OXYCODONE HYDROCHLORIDE
  6. OXYCONTIN [Concomitant]
     Active Substance: OXYCODONE HYDROCHLORIDE
  7. XYREM [Suspect]
     Active Substance: SODIUM OXYBATE
     Dosage: 4.5 G, BID
     Route: 048
     Dates: start: 201606
  8. FENTANYL. [Concomitant]
     Active Substance: FENTANYL
  9. BIOTIN [Concomitant]
     Active Substance: BIOTIN
  10. XANAX [Concomitant]
     Active Substance: ALPRAZOLAM
  11. BENZTROPINE [Concomitant]
     Active Substance: BENZTROPINE
  12. VITAMIN D3 [Concomitant]
     Active Substance: CHOLECALCIFEROL
  13. FLUORODEOXYGLUCOSE 18F [Concomitant]
  14. XYREM [Suspect]
     Active Substance: SODIUM OXYBATE
     Indication: CATAPLEXY
     Dosage: DOSE ADJUSTMENTS
     Route: 048
     Dates: start: 201605, end: 201606
  15. HALOPERIDOL DECAN [Concomitant]
  16. SOMA [Concomitant]
     Active Substance: CARISOPRODOL
  17. SONATA                             /00061001/ [Concomitant]
  18. VITAMIN B12 [Concomitant]
     Active Substance: CYANOCOBALAMIN
  19. LYRICA [Concomitant]
     Active Substance: PREGABALIN
  20. REMERON [Concomitant]
     Active Substance: MIRTAZAPINE
  21. NICORETTE [Concomitant]
     Active Substance: NICOTINE
  22. CYANOCOBALAMIN. [Concomitant]
     Active Substance: CYANOCOBALAMIN
  23. FOLIC ACID. [Concomitant]
     Active Substance: FOLIC ACID
  24. MULTIVITAMINS                      /00116001/ [Concomitant]
     Active Substance: VITAMINS
  25. CORTEF [Concomitant]
     Active Substance: HYDROCORTISONE
  26. MELATONIN [Concomitant]
     Active Substance: MELATONIN
  27. SEROQUEL [Concomitant]
     Active Substance: QUETIAPINE FUMARATE
  28. SODIUM CHLORIDE. [Concomitant]
     Active Substance: SODIUM CHLORIDE

REACTIONS (1)
  - Hospice care [Unknown]
